FAERS Safety Report 5148029-2 (Version None)
Quarter: 2006Q4

REPORT INFORMATION
  Report Type: 
  Country: None (occurrence: None)
  Receive Date: 20061110
  Receipt Date: 20061005
  Transmission Date: 20070319
  Serious: Yes (Life-Threatening, Hospitalization, Other)
  Sender: FDA-Public Use
  Company Number: FR-GLAXOSMITHKLINE-B0441297A

PATIENT
  Age: 83 Year
  Sex: Female
  Weight: 70 kg

DRUGS (5)
  1. ARIXTRA [Suspect]
     Indication: DEEP VEIN THROMBOSIS
     Dosage: 7.5MG PER DAY
     Route: 058
     Dates: start: 20060923, end: 20060929
  2. DOGMATIL [Concomitant]
     Indication: ANXIETY DISORDER
     Dosage: 100MG PER DAY
     Route: 048
     Dates: start: 20060801
  3. SPIROCTAZINE [Concomitant]
     Indication: HYPERTENSION
     Dosage: 25MG PER DAY
     Route: 048
  4. AMPECYCLAL [Concomitant]
     Indication: VENOUS INSUFFICIENCY
     Dosage: 1800MG PER DAY
     Route: 048
  5. ZOLPIDEM TARTRATE [Concomitant]
     Indication: INSOMNIA
     Dosage: 10MG PER DAY
     Route: 048

REACTIONS (5)
  - HAEMORRHAGIC ANAEMIA [None]
  - OEDEMA PERIPHERAL [None]
  - PAIN IN EXTREMITY [None]
  - SKIN NECROSIS [None]
  - SPONTANEOUS HAEMATOMA [None]
